FAERS Safety Report 6837915-0 (Version None)
Quarter: 2010Q3

REPORT INFORMATION
  Report Type: 
  Country: None (occurrence: None)
  Receive Date: 20100713
  Receipt Date: 20070525
  Transmission Date: 20110219
  Serious: No
  Sender: FDA-Public Use
  Company Number: US-PFIZER INC-2007044470

PATIENT
  Sex: Female
  Weight: 61.3 kg

DRUGS (4)
  1. CHANTIX [Suspect]
     Indication: SMOKING CESSATION THERAPY
     Route: 048
     Dates: start: 20070301
  2. SYNTHROID [Concomitant]
     Route: 048
  3. PREVACID [Concomitant]
     Indication: OESOPHAGEAL SPASM
     Route: 048
  4. VITAMINS [Concomitant]
     Route: 048

REACTIONS (4)
  - ACNE [None]
  - GASTROENTERITIS VIRAL [None]
  - INSOMNIA [None]
  - WEIGHT INCREASED [None]
